FAERS Safety Report 17044228 (Version 1)
Quarter: 2019Q4

REPORT INFORMATION
  Report Type: Spontaneous
  Country: US (occurrence: US)
  Receive Date: 20191017
  Receipt Date: 20191017
  Transmission Date: 20200122
  Serious: Yes (Life-Threatening, Hospitalization)
  Sender: FDA-Public Use
  Company Number: None

PATIENT
  Age: 68 Year
  Sex: Male
  Weight: 126.55 kg

DRUGS (3)
  1. DAPTOMYCIN 650MG/NS 50ML [Suspect]
     Active Substance: DAPTOMYCIN
     Indication: INFECTION
     Dosage: ?          QUANTITY:650 MG MILLIGRAM(S);OTHER FREQUENCY:EVERY 24HRS, DAILY;?IV PIC LINE
     Route: 042
     Dates: start: 20190726, end: 20190827
  2. BYPACK FOR SLEEPING [Concomitant]
  3. DAPTOMYCIN 650MG/NS 50ML [Suspect]
     Active Substance: DAPTOMYCIN
     Indication: ARTHRITIS INFECTIVE
     Dosage: ?          QUANTITY:650 MG MILLIGRAM(S);OTHER FREQUENCY:EVERY 24HRS, DAILY;?IV PIC LINE
     Route: 042
     Dates: start: 20190726, end: 20190827

REACTIONS (3)
  - Dyspnoea [None]
  - Eosinophilic pneumonia [None]
  - Asthenia [None]

NARRATIVE: CASE EVENT DATE: 20190814
